FAERS Safety Report 5369315-7 (Version None)
Quarter: 2007Q2

REPORT INFORMATION
  Report Type: 
  Country: None (occurrence: None)
  Receive Date: 20070625
  Receipt Date: 20070323
  Transmission Date: 20071010
  Serious: No
  Sender: FDA-Public Use
  Company Number: US-ASTRAZENECA-2007UW05960

PATIENT
  Sex: Male

DRUGS (6)
  1. CRESTOR [Suspect]
     Route: 048
  2. LISINOPRIL [Suspect]
     Route: 048
  3. TOPROL-XL [Suspect]
     Route: 048
  4. ASPIRIN [Concomitant]
  5. FISH OIL [Concomitant]
  6. GLUCOSAMINE [Concomitant]

REACTIONS (1)
  - ALOPECIA [None]
